FAERS Safety Report 8242867-5 (Version None)
Quarter: 2012Q1

REPORT INFORMATION
  Report Type: 
  Country: None (occurrence: None)
  Receive Date: 20120329
  Receipt Date: 20120323
  Transmission Date: 20120608
  Serious: Yes (Hospitalization)
  Sender: FDA-Public Use
  Company Number: IT-PFIZER INC-2012076730

PATIENT
  Age: 72 Year
  Sex: Male

DRUGS (5)
  1. CYCLOPHOSPHAMIDE [Concomitant]
     Dosage: UNK
     Dates: start: 20110610, end: 20110912
  2. VINCRISTINE [Concomitant]
     Dosage: UNK
     Dates: start: 20110610, end: 20110912
  3. DOXORUBICIN HCL [Suspect]
     Indication: NON-HODGKIN'S LYMPHOMA
     Dosage: 47 MG, CYCLIC
     Dates: start: 20110610, end: 20110617
  4. PREDNISONE [Concomitant]
     Dosage: UNK
     Dates: start: 20110610, end: 20110912
  5. RITUXIMAB [Concomitant]
     Dosage: UNK
     Dates: start: 20110610, end: 20110912

REACTIONS (1)
  - ACUTE MYOCARDIAL INFARCTION [None]
